FAERS Safety Report 9272004 (Version 2)
Quarter: 2013Q2

REPORT INFORMATION
  Report Type: Spontaneous
  Country: JP (occurrence: JP)
  Receive Date: 20130506
  Receipt Date: 20130513
  Transmission Date: 20140414
  Serious: Yes (Other)
  Sender: FDA-Public Use
  Company Number: JP-UCBSA-085038

PATIENT
  Sex: 0

DRUGS (1)
  1. E KEPPRA [Suspect]
     Dosage: DOSE STRENGH : 500 MG
     Route: 048

REACTIONS (1)
  - Electrocardiogram QT prolonged [Unknown]
